FAERS Safety Report 22163010 (Version 1)
Quarter: 2023Q2

REPORT INFORMATION
  Report Type: Spontaneous
  Country: BR (occurrence: BR)
  Receive Date: 20230401
  Receipt Date: 20230401
  Transmission Date: 20230721
  Serious: Yes (Other)
  Sender: FDA-Public Use
  Company Number: BR-CELLTRION INC.-2022BR010969

PATIENT

DRUGS (4)
  1. INFLIXIMAB [Suspect]
     Active Substance: INFLIXIMAB
     Indication: Colitis ulcerative
     Dosage: NOT STARTED YET (DOSE OMISSION)
     Route: 042
  2. AZATHIOPRINE [Suspect]
     Active Substance: AZATHIOPRINE
     Indication: Gastrointestinal inflammation
     Dosage: 2 TO 3 PILLS PER DAY STARTED 8 MONTHS
     Route: 048
  3. AZATHIOPRINE [Suspect]
     Active Substance: AZATHIOPRINE
     Dosage: 25 MG, 2 TO 3 PILLS PER DAY FOR 8 MONTHS
     Route: 048
  4. AZATHIOPRINE [Suspect]
     Active Substance: AZATHIOPRINE
     Indication: Gastrointestinal inflammation
     Dosage: 2 TO 3 PILLS PER DAY STARTED 8 MONTHS
     Route: 048

REACTIONS (8)
  - Haematochezia [Unknown]
  - Mucous stools [Unknown]
  - Gastrointestinal pain [Unknown]
  - Product distribution issue [Unknown]
  - Diarrhoea [Unknown]
  - Product storage error [Unknown]
  - Intentional dose omission [Unknown]
  - Therapy interrupted [Unknown]

NARRATIVE: CASE EVENT DATE: 20230320
